FAERS Safety Report 18654961 (Version 3)
Quarter: 2021Q1

REPORT INFORMATION
  Report Type: Report from Study
  Country: KR (occurrence: KR)
  Receive Date: 20201223
  Receipt Date: 20210225
  Transmission Date: 20210419
  Serious: Yes (Hospitalization)
  Sender: FDA-Public Use
  Company Number: KR-MACROGENICS-2020000181

PATIENT
  Age: 53 Year
  Sex: Male
  Weight: 61 kg

DRUGS (6)
  1. RETIFANLIMAB. [Suspect]
     Active Substance: RETIFANLIMAB
     Indication: GASTRIC CANCER
     Dosage: 375 MILLIGRAM, Q3WEEKS
     Route: 042
     Dates: start: 20201022, end: 20201022
  2. RETIFANLIMAB. [Suspect]
     Active Substance: RETIFANLIMAB
     Dosage: 375 MILLIGRAM, Q3WEEKS
     Route: 042
     Dates: start: 20201110, end: 20201110
  3. MARGETUXIMAB. [Suspect]
     Active Substance: MARGETUXIMAB
     Indication: GASTRIC CANCER
     Dosage: 15 MILLIGRAM/KILOGRAM, Q3WEEKS
     Route: 042
     Dates: start: 20201022, end: 20201022
  4. CHLORPHENIRAMINE MALEATE. [Concomitant]
     Active Substance: CHLORPHENIRAMINE MALEATE
     Indication: PREMEDICATION
     Dosage: 25 MILLIGRAM, QD
     Route: 042
     Dates: start: 20201110, end: 20201110
  5. ULTRACET ER SEMI [Concomitant]
     Indication: PREMEDICATION
     Dosage: 1 TABLET DOSING UNIT QD
     Route: 048
     Dates: start: 20201110, end: 20201110
  6. MARGETUXIMAB. [Suspect]
     Active Substance: MARGETUXIMAB
     Dosage: 15 MILLIGRAM/KILOGRAM, Q3WEEKS
     Route: 042
     Dates: start: 20201110, end: 20201110

REACTIONS (1)
  - Immune-mediated renal disorder [Recovered/Resolved]

NARRATIVE: CASE EVENT DATE: 20201209
